APPROVED DRUG PRODUCT: NEOMYCIN AND POLYMYXIN B SULFATES AND DEXAMETHASONE
Active Ingredient: DEXAMETHASONE; NEOMYCIN SULFATE; POLYMYXIN B SULFATE
Strength: 0.1%;EQ 3.5MG BASE/ML;10,000 UNITS/ML
Dosage Form/Route: SUSPENSION/DROPS;OPHTHALMIC
Application: A062721 | Product #001
Applicant: ALCON PHARMACEUTICALS LTD
Approved: Nov 17, 1986 | RLD: No | RS: No | Type: DISCN